FAERS Safety Report 5752698-3 (Version None)
Quarter: 2008Q2

REPORT INFORMATION
  Report Type: 
  Country: None (occurrence: None)
  Receive Date: 20080529
  Receipt Date: 20080519
  Transmission Date: 20081010
  Serious: Yes (Hospitalization, Other)
  Sender: FDA-Public Use
  Company Number: HQWYE455212NOV04

PATIENT
  Sex: Female

DRUGS (15)
  1. PREMPRO [Suspect]
  2. 0.1MG LEVONORGESTREL/0.02MG ETHINYL ESTRADIOL/INERT [Suspect]
  3. MEDROXYPROGESTERONE ACETATE [Suspect]
  4. DEPO-PROVERA [Suspect]
  5. ESTRATEST [Suspect]
  6. SYNTHROID [Concomitant]
  7. GLUCOPHAGE [Concomitant]
  8. LOPID [Concomitant]
  9. PRAVACHOL [Concomitant]
  10. ATIVAN [Concomitant]
  11. ASCORBIC ACID [Concomitant]
  12. VITAMIN B [Concomitant]
  13. MEDROXYPROGESTERONE ACETATE [Suspect]
     Indication: HORMONE REPLACEMENT THERAPY
  14. FEMHRT [Suspect]
  15. PREMARIN [Suspect]

REACTIONS (4)
  - BREAST CANCER [None]
  - CEREBROVASCULAR ACCIDENT [None]
  - DIABETES MELLITUS [None]
  - PANCREATITIS [None]
